FAERS Safety Report 9173330 (Version 3)
Quarter: 2013Q1

REPORT INFORMATION
  Report Type: Spontaneous
  Country: CZ (occurrence: CZ)
  Receive Date: 20130320
  Receipt Date: 20130329
  Transmission Date: 20140127
  Serious: Yes (Death)
  Sender: FDA-Public Use
  Company Number: CZ-JNJFOC-20130308715

PATIENT
  Sex: Female

DRUGS (6)
  1. DOXORUBICIN [Suspect]
     Indication: PLASMA CELL MYELOMA
     Dosage: ADMINISTERED ON DAY 1, 4, 8, AND 15 OF A 28-DAY CYCLE.
     Route: 042
  2. DOXORUBICIN [Suspect]
     Indication: AMYLOIDOSIS
     Dosage: ADMINISTERED ON DAY 1, 4, 8, AND 15 OF A 28-DAY CYCLE.
     Route: 042
  3. VELCADE [Suspect]
     Indication: PLASMA CELL MYELOMA
     Dosage: ADMINISTERED ON DAY 1, 4, 8, AND 15 OF A 28-DAY CYCLE.
     Route: 042
  4. VELCADE [Suspect]
     Indication: AMYLOIDOSIS
     Dosage: ADMINISTERED ON DAY 1, 4, 8, AND 15 OF A 28-DAY CYCLE.
     Route: 042
  5. DEXAMETHASONE [Suspect]
     Indication: PLASMA CELL MYELOMA
     Dosage: 20 OR 40 MG ADMINISTERED ON DAY 1, 4, 8, AND 15 OF A 28-DAY CYCLE.
     Route: 042
  6. DEXAMETHASONE [Suspect]
     Indication: AMYLOIDOSIS
     Dosage: 20 OR 40 MG ADMINISTERED ON DAY 1, 4, 8, AND 15 OF A 28-DAY CYCLE.
     Route: 042

REACTIONS (3)
  - Amyloidosis [Fatal]
  - Infection [Fatal]
  - Drug intolerance [Unknown]
